FAERS Safety Report 24764914 (Version 1)
Quarter: 2024Q4

REPORT INFORMATION
  Report Type: Spontaneous
  Country: US (occurrence: US)
  Receive Date: 20241223
  Receipt Date: 20241223
  Transmission Date: 20250115
  Serious: Yes (Other)
  Sender: AMGEN
  Company Number: US-AMGEN-USASP2016046462

PATIENT

DRUGS (4)
  1. CARFILZOMIB [Suspect]
     Active Substance: CARFILZOMIB
     Indication: Plasma cell myeloma
     Dosage: 20 MILLIGRAM/SQ. METER DAY 1 AND 2
     Route: 042
  2. CARFILZOMIB [Suspect]
     Active Substance: CARFILZOMIB
     Dosage: 27 MILLIGRAM/SQ. METER
     Route: 042
  3. PELAREOREP [Suspect]
     Active Substance: PELAREOREP
     Indication: Plasma cell myeloma
     Dosage: (3 X 10 TCID /DAY)
     Route: 065
  4. DEXAMETHASONE [Concomitant]
     Active Substance: DEXAMETHASONE
     Dosage: 20 MG, ON DAYS 1, 2, 8, 9, 15, AND 16 OF A 28-DAY CYCLE
     Route: 065

REACTIONS (1)
  - Cardiac failure congestive [Unknown]
